FAERS Safety Report 23848208 (Version 1)
Quarter: 2024Q2

REPORT INFORMATION
  Report Type: Spontaneous
  Country: US (occurrence: None)
  Receive Date: 20240510
  Receipt Date: 20240510
  Transmission Date: 20240715
  Serious: Yes (Life-Threatening, Hospitalization, Disabling, Other)
  Sender: FDA-Public Use
  Company Number: None

PATIENT
  Age: 51 Year
  Sex: Male
  Weight: 105.75 kg

DRUGS (1)
  1. OZEMPIC [Suspect]
     Active Substance: SEMAGLUTIDE
     Dates: start: 20230815, end: 20240110

REACTIONS (7)
  - Dyspnoea [None]
  - Rhinorrhoea [None]
  - Pharyngeal swelling [None]
  - Nasal congestion [None]
  - Mania [None]
  - Suffocation feeling [None]
  - Suicidal ideation [None]

NARRATIVE: CASE EVENT DATE: 20230830
